FAERS Safety Report 15668410 (Version 2)
Quarter: 2018Q4

REPORT INFORMATION
  Report Type: Spontaneous
  Country: JP (occurrence: JP)
  Receive Date: 20181129
  Receipt Date: 20181219
  Transmission Date: 20190205
  Serious: Yes (Other)
  Sender: FDA-Public Use
  Company Number: JP-009507513-1811JPN002747J

PATIENT

DRUGS (1)
  1. KEYTRUDA [Suspect]
     Active Substance: PEMBROLIZUMAB
     Indication: NON-SMALL CELL LUNG CANCER
     Dosage: UNK
     Route: 041

REACTIONS (6)
  - Dry skin [Unknown]
  - Nerve root injury cervical [Unknown]
  - Pericarditis malignant [Unknown]
  - Type 1 diabetes mellitus [Unknown]
  - Psoriasis [Unknown]
  - Pyrexia [Unknown]
